FAERS Safety Report 4284527-1 (Version None)
Quarter: 2004Q1

REPORT INFORMATION
  Report Type: 
  Country: None (occurrence: None)
  Receive Date: 20040130
  Receipt Date: 20040112
  Transmission Date: 20041129
  Serious: Yes (Hospitalization)
  Sender: FDA-Public Use
  Company Number: FR_040103394

PATIENT
  Age: 3 Day
  Sex: Male
  Weight: 2 kg

DRUGS (6)
  1. PROZAC [Suspect]
     Dates: start: 20030102, end: 20030928
  2. XANAX [Concomitant]
  3. STILNOX (ZOLPIDEM) [Concomitant]
  4. DEPAKENE [Concomitant]
  5. PROPRANOLOL [Concomitant]
  6. NEO-MERCAZOLE TAB [Concomitant]

REACTIONS (14)
  - AGITATION NEONATAL [None]
  - ANXIETY [None]
  - BLOOD GLUCOSE ABNORMAL [None]
  - CAESAREAN SECTION [None]
  - FACIAL DYSMORPHISM [None]
  - FOETAL ARRHYTHMIA [None]
  - GASTROINTESTINAL DISORDER [None]
  - IRRITABILITY [None]
  - MALNUTRITION [None]
  - MATERNAL DRUGS AFFECTING FOETUS [None]
  - NEONATAL DISORDER [None]
  - PREMATURE BABY [None]
  - SLEEP DISORDER [None]
  - TREMOR NEONATAL [None]
